FAERS Safety Report 9658836 (Version 2)
Quarter: 2013Q4

REPORT INFORMATION
  Report Type: Spontaneous
  Country: US (occurrence: US)
  Receive Date: 20131030
  Receipt Date: 20131030
  Transmission Date: 20140711
  Serious: No
  Sender: FDA-Public Use
  Company Number: US-PURDUE-USA-2010-0051134

PATIENT
  Age: 54 Year
  Sex: Female

DRUGS (2)
  1. OXYCONTIN (NDA 22-272) [Suspect]
     Indication: NEUROPATHY PERIPHERAL
     Dosage: 160 MG, BID
     Dates: start: 20100920
  2. OXYCONTIN (NDA 22-272) [Suspect]
     Indication: ARTHRITIS

REACTIONS (17)
  - Malabsorption [Unknown]
  - Cough [Unknown]
  - Nausea [Unknown]
  - Vomiting [Unknown]
  - Faeces discoloured [Unknown]
  - Hyperhidrosis [Unknown]
  - Malaise [Unknown]
  - Abdominal pain upper [Unknown]
  - Diarrhoea [Unknown]
  - Fatigue [Unknown]
  - Drug effect decreased [Unknown]
  - Mobility decreased [Unknown]
  - Decreased appetite [Unknown]
  - Therapeutic response delayed [Unknown]
  - Headache [Unknown]
  - Quality of life decreased [Unknown]
  - Asthenia [Unknown]
